FAERS Safety Report 6268735-6 (Version None)
Quarter: 2009Q3

REPORT INFORMATION
  Report Type: 
  Country: None (occurrence: None)
  Receive Date: 20090715
  Receipt Date: 20090708
  Transmission Date: 20100115
  Serious: Yes (Hospitalization, Other)
  Sender: FDA-Public Use
  Company Number: US-AMGEN-STX349409

PATIENT
  Sex: Male
  Weight: 116.2 kg

DRUGS (2)
  1. VECTIBIX [Suspect]
     Indication: COLORECTAL CANCER
     Route: 042
     Dates: start: 20070711, end: 20090420
  2. OXALIPLATIN [Suspect]
     Route: 065
     Dates: start: 20040915, end: 20090420

REACTIONS (4)
  - BRONCHOSPASM [None]
  - CYANOSIS [None]
  - INFUSION RELATED REACTION [None]
  - THROMBOCYTOPENIA [None]
